FAERS Safety Report 5557824-7 (Version None)
Quarter: 2007Q4

REPORT INFORMATION
  Report Type: 
  Country: None (occurrence: None)
  Receive Date: 20071214
  Receipt Date: 20071211
  Transmission Date: 20080405
  Serious: Yes (Other)
  Sender: FDA-Public Use
  Company Number: US-MERCK-0507USA01957

PATIENT
  Age: 63 Year
  Sex: Male

DRUGS (2)
  1. MEVACOR [Suspect]
     Indication: BLOOD CHOLESTEROL INCREASED
     Route: 048
     Dates: start: 20050301, end: 20050301
  2. ZOCOR [Suspect]
     Route: 048
     Dates: end: 20050301

REACTIONS (5)
  - CEREBROVASCULAR ACCIDENT [None]
  - CONSTIPATION [None]
  - DIPLOPIA [None]
  - MUSCLE SPASMS [None]
  - OEDEMA PERIPHERAL [None]
